FAERS Safety Report 8282532-1 (Version None)
Quarter: 2012Q2

REPORT INFORMATION
  Report Type: 
  Country: None (occurrence: None)
  Receive Date: 20120413
  Receipt Date: 20120409
  Transmission Date: 20120825
  Serious: Yes (Hospitalization)
  Sender: FDA-Public Use
  Company Number: JP-ROCHE-765237

PATIENT
  Age: 71 Year
  Sex: Female
  Weight: 41 kg

DRUGS (11)
  1. POLARAMINE [Suspect]
     Indication: LARGE INTESTINE CARCINOMA
     Route: 041
     Dates: start: 20090805, end: 20101216
  2. OXALIPLATIN [Suspect]
     Indication: LARGE INTESTINE CARCINOMA
     Route: 041
  3. FLUOROURACIL [Suspect]
     Dates: start: 20100107, end: 20101216
  4. DEXAMETHASONE SODIUM PHOSPHATE [Suspect]
     Indication: LARGE INTESTINE CARCINOMA
     Route: 041
     Dates: start: 20090825, end: 20101216
  5. FLUOROURACIL [Suspect]
     Indication: LARGE INTESTINE CARCINOMA
     Dosage: DOSE FORM: INJECTION, DOSAGE IS UNCERTAIN.
     Route: 040
  6. FLUOROURACIL [Suspect]
     Route: 041
     Dates: start: 20090805
  7. FLUOROURACIL [Suspect]
     Dates: start: 20100107, end: 20101201
  8. LEVOLEUCOVORIN CALCIUM [Suspect]
     Indication: LARGE INTESTINE CARCINOMA
     Route: 041
     Dates: start: 20090805, end: 20091224
  9. LEVOLEUCOVORIN CALCIUM [Suspect]
     Dates: start: 20100107, end: 20101216
  10. AVASTIN [Suspect]
     Indication: LARGE INTESTINE CARCINOMA
     Dosage: DOSE FORM:INJECTION
     Route: 041
  11. GRANISETRON [Suspect]
     Indication: LARGE INTESTINE CARCINOMA
     Route: 041
     Dates: start: 20090805, end: 20101216

REACTIONS (1)
  - CARDIAC FAILURE [None]
